FAERS Safety Report 8165334-6 (Version None)
Quarter: 2012Q1

REPORT INFORMATION
  Report Type: 
  Country: None (occurrence: None)
  Receive Date: 20120223
  Receipt Date: 20120223
  Transmission Date: 20120608
  Serious: Yes (Other)
  Sender: FDA-Public Use
  Company Number: None

PATIENT
  Sex: Male
  Weight: 86.1834 kg

DRUGS (2)
  1. RESTASIS [Suspect]
     Indication: DRY EYE
     Dosage: 1 DROP EACH EYE 2 X EA. DAY
     Dates: start: 20111201, end: 20120201
  2. IPL LASER [Concomitant]

REACTIONS (3)
  - BLINDNESS TRANSIENT [None]
  - MIGRAINE [None]
  - ASTHENOPIA [None]
